FAERS Safety Report 8478004-1 (Version None)
Quarter: 2012Q2

REPORT INFORMATION
  Report Type: 
  Country: None (occurrence: None)
  Receive Date: 20120629
  Receipt Date: 20120621
  Transmission Date: 20120825
  Serious: Yes (Other)
  Sender: FDA-Public Use
  Company Number: US-US-EMD SERONO, INC.-7142608

PATIENT
  Sex: Female
  Weight: 55 kg

DRUGS (2)
  1. REBIF [Suspect]
     Indication: PRODUCT USED FOR UNKNOWN INDICATION
     Route: 058
     Dates: start: 20091109
  2. TRAMADOL HCL [Concomitant]

REACTIONS (4)
  - VITAMIN D DECREASED [None]
  - COELIAC DISEASE [None]
  - THYROID NEOPLASM [None]
  - ANAEMIA [None]
